FAERS Safety Report 23022927 (Version 1)
Quarter: 2023Q4

REPORT INFORMATION
  Report Type: Spontaneous
  Country: FR (occurrence: FR)
  Receive Date: 20231003
  Receipt Date: 20231003
  Transmission Date: 20240110
  Serious: Yes (Other)
  Sender: FDA-Public Use
  Company Number: None

PATIENT
  Age: 59 Year
  Sex: Female
  Weight: 57 kg

DRUGS (1)
  1. EUTHYROX [Suspect]
     Active Substance: LEVOTHYROXINE SODIUM
     Indication: Hypothyroidism
     Route: 048
     Dates: start: 20170926, end: 20181101

REACTIONS (12)
  - Vertigo [Recovering/Resolving]
  - Visual impairment [Recovering/Resolving]
  - Gastrointestinal disorder [Recovering/Resolving]
  - Headache [Recovering/Resolving]
  - Insomnia [Recovering/Resolving]
  - Tremor [Recovering/Resolving]
  - Tachycardia [Recovering/Resolving]
  - Muscle spasms [Recovering/Resolving]
  - Alopecia [Recovering/Resolving]
  - Arthralgia [Recovering/Resolving]
  - Abnormal weight gain [Recovering/Resolving]
  - Asthenia [Recovering/Resolving]

NARRATIVE: CASE EVENT DATE: 20171103
